FAERS Safety Report 10206772 (Version 1)
Quarter: 2014Q2

REPORT INFORMATION
  Report Type: Spontaneous
  Country: GB (occurrence: GB)
  Receive Date: 20140530
  Receipt Date: 20140530
  Transmission Date: 20141212
  Serious: Yes (Other)
  Sender: FDA-Public Use
  Company Number: GB-SA-2014SA065396

PATIENT
  Age: 44 Year
  Sex: Female

DRUGS (11)
  1. LANTUS [Suspect]
     Indication: TYPE 1 DIABETES MELLITUS
     Dosage: DOSE:20 UNIT(S)
     Route: 065
  2. LANTUS [Suspect]
     Indication: TYPE 1 DIABETES MELLITUS
     Dosage: DOSE:12 UNIT(S)
     Route: 065
  3. LANTUS [Suspect]
     Indication: TYPE 1 DIABETES MELLITUS
     Dosage: DOSE:22 UNIT(S)
     Route: 065
     Dates: start: 1996
  4. THYROXIN [Concomitant]
  5. HUMULIN S [Concomitant]
  6. ATENOLOL [Concomitant]
  7. PERINDOPRIL [Concomitant]
  8. CENTRUM [Concomitant]
  9. ASPIRIN [Concomitant]
  10. DOCUSATE [Concomitant]
  11. ADCAL [Concomitant]

REACTIONS (2)
  - Suicidal ideation [Not Recovered/Not Resolved]
  - Weight increased [Not Recovered/Not Resolved]
